FAERS Safety Report 16551147 (Version 1)
Quarter: 2019Q3

REPORT INFORMATION
  Report Type: Spontaneous
  Country: DE (occurrence: DE)
  Receive Date: 20190710
  Receipt Date: 20190710
  Transmission Date: 20191004
  Serious: Yes (Life-Threatening, Hospitalization)
  Sender: FDA-Public Use
  Company Number: DE-TEVA-2019-DE-1074211

PATIENT
  Age: 58 Year
  Sex: Male

DRUGS (6)
  1. METOPROLOL. [Concomitant]
     Active Substance: METOPROLOL
     Dosage: 95 MG, 1-0-0.5-0
  2. IBUPROFEN. [Concomitant]
     Active Substance: IBUPROFEN
  3. FOLSAN [Concomitant]
     Active Substance: FOLIC ACID
     Dosage: 5 MG, FRIDAYS
  4. LISINOPRIL. [Concomitant]
     Active Substance: LISINOPRIL
     Dosage: NK MG, 0.5-0-0-0
  5. DOXEPIN [Concomitant]
     Active Substance: DOXEPIN
     Dosage: 25 MG, 0-0-1-0
  6. MTX [Suspect]
     Active Substance: METHOTREXATE SODIUM
     Dosage: 15 MG, WEDNESDAYS

REACTIONS (3)
  - Vomiting [Unknown]
  - Diarrhoea [Unknown]
  - Dyspnoea [Unknown]
